FAERS Safety Report 6602486-0 (Version None)
Quarter: 2010Q1

REPORT INFORMATION
  Report Type: 
  Country: None (occurrence: None)
  Receive Date: 20100225
  Receipt Date: 20100218
  Transmission Date: 20100710
  Serious: Yes (Other)
  Sender: FDA-Public Use
  Company Number: US-ABBOTT-10P-163-0627678-00

PATIENT
  Age: 51 Year
  Sex: Female

DRUGS (2)
  1. SIMCOR [Suspect]
     Indication: DRUG USE FOR UNKNOWN INDICATION
     Dosage: 500/20
     Dates: start: 20100101, end: 20100201
  2. SIMCOR [Suspect]
     Dosage: 1000/20
     Dates: start: 20100201

REACTIONS (3)
  - BALANCE DISORDER [None]
  - DEAFNESS [None]
  - TINNITUS [None]
